FAERS Safety Report 5154605-3 (Version None)
Quarter: 2006Q4

REPORT INFORMATION
  Report Type: 
  Country: None (occurrence: None)
  Receive Date: 20061120
  Receipt Date: 20061110
  Transmission Date: 20070319
  Serious: Yes (Disabling)
  Sender: FDA-Public Use
  Company Number: BE-ABBOTT-06P-013-0350015-00

PATIENT
  Sex: Male

DRUGS (2)
  1. DEPAKENE [Suspect]
     Indication: TEMPORAL LOBE EPILEPSY
     Route: 048
     Dates: start: 20040501, end: 20060831
  2. DEPAKENE [Suspect]
     Dates: start: 20060908

REACTIONS (4)
  - DRUG WITHDRAWAL SYNDROME [None]
  - MIGRAINE [None]
  - REBOUND EFFECT [None]
  - VERTIGO POSITIONAL [None]
